FAERS Safety Report 6466118-7 (Version None)
Quarter: 2009Q4

REPORT INFORMATION
  Report Type: 
  Country: None (occurrence: None)
  Receive Date: 20091127
  Receipt Date: 20091116
  Transmission Date: 20100525
  Serious: Yes (Death)
  Sender: FDA-Public Use
  Company Number: 2009AC000252

PATIENT
  Age: 68 Year
  Sex: Male

DRUGS (37)
  1. DIGOXIN [Suspect]
     Dosage: 0.25 MG; QD; PO
     Route: 048
     Dates: start: 20000401, end: 20080401
  2. LEVOTHYROXINE SODIUM [Concomitant]
  3. QUINAPRIL [Concomitant]
  4. KLOR-CON [Concomitant]
  5. LIPITOR [Concomitant]
  6. ISOSORBIDE [Concomitant]
  7. METOPROLOL [Concomitant]
  8. WARFARIN SODIUM [Concomitant]
  9. GLIPIZIDE [Concomitant]
  10. METFORMIN HCL [Concomitant]
  11. FUROSEMIDE [Concomitant]
  12. ACCUPRIL [Concomitant]
  13. TOPROL-XL [Concomitant]
  14. IBUPROFEN [Concomitant]
  15. PREDNISONE [Concomitant]
  16. ROXICODONE [Concomitant]
  17. GLUCOTROL [Concomitant]
  18. AVANDIA [Concomitant]
  19. GLUCOPHAGE [Concomitant]
  20. NEURONTIN [Concomitant]
  21. DIAZEPAM [Concomitant]
  22. OXYCODONE [Concomitant]
  23. HYDROCODONE [Concomitant]
  24. FLOMAX [Concomitant]
  25. BAYCOL [Concomitant]
  26. DOXYCYCLINE [Concomitant]
  27. INDOMETHACIN [Concomitant]
  28. MEPHYTON [Concomitant]
  29. POTASSIUM CHLORIDE [Concomitant]
  30. GLYCOLAX [Concomitant]
  31. TRANSDERM SCOP [Concomitant]
  32. VIAGRA [Concomitant]
  33. PROPOXY/APAP [Concomitant]
  34. DARVOCET [Concomitant]
  35. CEPHALEXIN [Concomitant]
  36. MEPROBAMATE [Concomitant]
  37. LOVENOX [Concomitant]

REACTIONS (24)
  - ACUTE PULMONARY OEDEMA [None]
  - AGITATION [None]
  - ANGINA PECTORIS [None]
  - ANGINA UNSTABLE [None]
  - ANHEDONIA [None]
  - ARRHYTHMIA [None]
  - ASTHENIA [None]
  - BUNDLE BRANCH BLOCK LEFT [None]
  - CARDIAC FAILURE [None]
  - CARDIAC FAILURE CONGESTIVE [None]
  - CARDIOMYOPATHY [None]
  - CHEST DISCOMFORT [None]
  - CONFUSIONAL STATE [None]
  - DECREASED APPETITE [None]
  - DYSPNOEA [None]
  - ECONOMIC PROBLEM [None]
  - FATIGUE [None]
  - HYPERLIPIDAEMIA [None]
  - HYPERTENSION [None]
  - HYPERTENSIVE HEART DISEASE [None]
  - INJURY [None]
  - LOSS OF EMPLOYMENT [None]
  - OEDEMA [None]
  - PAIN [None]
